FAERS Safety Report 4861500-3 (Version None)
Quarter: 2005Q4

REPORT INFORMATION
  Report Type: 
  Country: None (occurrence: None)
  Receive Date: 20051129
  Receipt Date: 20050405
  Transmission Date: 20060501
  Serious: Yes (Other)
  Sender: FDA-Public Use
  Company Number: WAES 0504USA00716

PATIENT
  Age: 39 Year
  Sex: Female
  Weight: 48.9885 kg

DRUGS (4)
  1. FOSAMAX [Suspect]
     Indication: OSTEOPOROSIS
     Dosage: 70 MG/PO
     Route: 048
     Dates: start: 20050301, end: 20050301
  2. FLONASE [Concomitant]
  3. SINGULAIR [Concomitant]
  4. PREDNISONE [Concomitant]

REACTIONS (4)
  - ABDOMINAL PAIN [None]
  - GASTRIC ULCER [None]
  - NAUSEA [None]
  - VOMITING [None]
